FAERS Safety Report 13405857 (Version 2)
Quarter: 2017Q3

REPORT INFORMATION
  Report Type: Spontaneous
  Country: US (occurrence: US)
  Receive Date: 20170405
  Receipt Date: 20170714
  Transmission Date: 20171127
  Serious: Yes (Hospitalization)
  Sender: FDA-Public Use
  Company Number: US-B.I. PHARMACEUTICALS,INC./RIDGEFIELD-2017-BI-018283

PATIENT
  Sex: Male

DRUGS (2)
  1. PREDNISONE. [Concomitant]
     Active Substance: PREDNISONE
     Indication: SARCOIDOSIS
     Route: 048
     Dates: start: 2015
  2. COMBIVENT [Suspect]
     Active Substance: ALBUTEROL SULFATE\IPRATROPIUM BROMIDE
     Indication: SARCOIDOSIS
     Dosage: FORM STRENGTH/ UNIT DOSE: 20 MCG / 100 MCG; DAILY DOSE: 60 MCG / 300 MCG (MINIMAL AS NEEDED)
     Route: 055
     Dates: start: 2011

REACTIONS (6)
  - Fall [Recovered/Resolved]
  - Off label use [Unknown]
  - Lumbar vertebral fracture [Not Recovered/Not Resolved]
  - Atrial fibrillation [Not Recovered/Not Resolved]
  - Chest discomfort [Not Recovered/Not Resolved]
  - Product quality issue [Unknown]

NARRATIVE: CASE EVENT DATE: 2011
